FAERS Safety Report 4891972-X (Version None)
Quarter: 2006Q1

REPORT INFORMATION
  Report Type: 
  Country: None (occurrence: None)
  Receive Date: 20060126
  Receipt Date: 20050513
  Transmission Date: 20060701
  Serious: Yes (Death, Life-Threatening, Hospitalization)
  Sender: FDA-Public Use
  Company Number: PHHO2005JP07717

PATIENT
  Age: 77 Year
  Sex: Female
  Weight: 49 kg

DRUGS (7)
  1. DIOVAN [Suspect]
     Indication: HYPERTENSION
     Dosage: 40 MG DAILY
     Route: 048
     Dates: start: 20030227, end: 20050506
  2. THYRADIN S [Concomitant]
     Indication: HYPOTHYROIDISM
  3. FERROMIA [Concomitant]
     Indication: IRON DEFICIENCY ANAEMIA
  4. LASIX [Concomitant]
     Indication: CARDIAC FAILURE
  5. ALDACTONE [Concomitant]
     Indication: CARDIAC FAILURE
  6. GASTER D [Concomitant]
     Indication: GASTRITIS
     Dates: end: 20050505
  7. GASTER [Concomitant]
     Indication: GASTRITIS

REACTIONS (12)
  - ANAEMIA [None]
  - C-REACTIVE PROTEIN INCREASED [None]
  - CARDIAC FAILURE [None]
  - DEPRESSED LEVEL OF CONSCIOUSNESS [None]
  - DYSPNOEA [None]
  - ELECTROCARDIOGRAM ABNORMAL [None]
  - HYPOALBUMINAEMIA [None]
  - HYPOGLYCAEMIA [None]
  - HYPOTENSION [None]
  - PYREXIA [None]
  - SINUS BRADYCARDIA [None]
  - UPPER RESPIRATORY TRACT INFECTION [None]
